FAERS Safety Report 12460613 (Version 4)
Quarter: 2016Q3

REPORT INFORMATION
  Report Type: Report from Study
  Country: JP (occurrence: JP)
  Receive Date: 20160613
  Receipt Date: 20160815
  Transmission Date: 20161109
  Serious: Yes (Death, Hospitalization)
  Sender: FDA-Public Use
  Company Number: JP-PFIZER INC-2016293784

PATIENT
  Age: 84 Year
  Sex: Female
  Weight: 56 kg

DRUGS (8)
  1. XELJANZ [Suspect]
     Active Substance: TOFACITINIB CITRATE
     Indication: RHEUMATOID ARTHRITIS
     Dosage: 5 MG, 1X/DAY
     Route: 048
     Dates: start: 20150122
  2. LUPRAC [Concomitant]
     Active Substance: TORSEMIDE
  3. NEOISCOTIN [Concomitant]
     Active Substance: METHANIAZIDE
     Indication: ANTIBIOTIC PROPHYLAXIS
  4. LENDORMIN [Concomitant]
     Active Substance: BROTIZOLAM
  5. PREDNISOLONE. [Concomitant]
     Active Substance: PREDNISOLONE
     Indication: RHEUMATOID ARTHRITIS
     Dosage: 2.5 MG, DAILY
     Dates: start: 20110119
  6. LUNESTA [Concomitant]
     Active Substance: ESZOPICLONE
  7. DENOTAS [Concomitant]
     Active Substance: CALCIUM CARBONATE\CHOLECALCIFEROL\MAGNESIUM CARBONATE
     Dosage: UNK
     Route: 048
  8. NEXIUM [Concomitant]
     Active Substance: ESOMEPRAZOLE MAGNESIUM

REACTIONS (2)
  - Duodenitis [Fatal]
  - Facial paralysis [Fatal]

NARRATIVE: CASE EVENT DATE: 20160525
